FAERS Safety Report 6374060-5 (Version None)
Quarter: 2009Q3

REPORT INFORMATION
  Report Type: 
  Country: None (occurrence: None)
  Receive Date: 20090924
  Receipt Date: 20090708
  Transmission Date: 20100115
  Serious: No
  Sender: FDA-Public Use
  Company Number: US-ASTRAZENECA-2009UW18951

PATIENT
  Age: 49 Year
  Sex: Female
  Weight: 65.3 kg

DRUGS (4)
  1. SEROQUEL XR [Suspect]
     Indication: BIPOLAR DISORDER
     Route: 048
  2. GEODON [Concomitant]
  3. LITHIUM [Concomitant]
  4. THYROID TAB [Concomitant]

REACTIONS (6)
  - ALOPECIA [None]
  - DRY MOUTH [None]
  - DYSPNOEA [None]
  - NASAL CONGESTION [None]
  - PALPITATIONS [None]
  - PANIC ATTACK [None]
